FAERS Safety Report 6307664-6 (Version None)
Quarter: 2009Q3

REPORT INFORMATION
  Report Type: 
  Country: None (occurrence: None)
  Receive Date: 20090813
  Receipt Date: 20090804
  Transmission Date: 20100115
  Serious: Yes (Other)
  Sender: FDA-Public Use
  Company Number: PHEH2009US07969

PATIENT
  Sex: Female
  Weight: 59.864 kg

DRUGS (1)
  1. RECLAST [Suspect]
     Indication: OSTEOPOROSIS POSTMENOPAUSAL
     Dosage: 5 MG, YEARLY
     Route: 042

REACTIONS (4)
  - ABSCESS [None]
  - PYREXIA [None]
  - SEPSIS [None]
  - STAPHYLOCOCCAL INFECTION [None]
